FAERS Safety Report 6385358-9 (Version None)
Quarter: 2009Q4

REPORT INFORMATION
  Report Type: 
  Country: None (occurrence: None)
  Receive Date: 20091002
  Receipt Date: 20080812
  Transmission Date: 20100525
  Serious: No
  Sender: FDA-Public Use
  Company Number: US-ASTRAZENECA-2008UW16443

PATIENT
  Age: 62 Year
  Sex: Female
  Weight: 79.8 kg

DRUGS (1)
  1. ARIMIDEX [Suspect]
     Indication: BREAST CANCER
     Route: 048
     Dates: start: 20040101

REACTIONS (2)
  - ARTHRITIS [None]
  - NEUROPATHY PERIPHERAL [None]
